FAERS Safety Report 17655570 (Version 1)
Quarter: 2020Q2

REPORT INFORMATION
  Report Type: Spontaneous
  Country: FR (occurrence: FR)
  Receive Date: 20200410
  Receipt Date: 20200410
  Transmission Date: 20200713
  Serious: Yes (Other)
  Sender: FDA-Public Use
  Company Number: FR-GILEAD-2020-0458554

PATIENT
  Age: 66 Year
  Sex: Male
  Weight: 85 kg

DRUGS (9)
  1. LINEZOLIDE KABI [Suspect]
     Active Substance: LINEZOLID
     Indication: BONE MARROW FAILURE
     Route: 041
     Dates: start: 20200225, end: 20200308
  2. INEXIUM [ESOMEPRAZOLE MAGNESIUM] [Suspect]
     Active Substance: ESOMEPRAZOLE MAGNESIUM
     Indication: PRODUCT USED FOR UNKNOWN INDICATION
     Route: 041
     Dates: start: 20200225, end: 20200228
  3. TAMIFLU [Suspect]
     Active Substance: OSELTAMIVIR PHOSPHATE
     Indication: PROPHYLAXIS
     Route: 048
     Dates: start: 202002, end: 20200229
  4. ZAVICEFTA [Suspect]
     Active Substance: AVIBACTAM SODIUM\CEFTAZIDIME
     Indication: BONE MARROW FAILURE
     Route: 041
     Dates: start: 20200224, end: 20200229
  5. ROACTEMRA [Suspect]
     Active Substance: TOCILIZUMAB
     Indication: CYTOKINE RELEASE SYNDROME
     Route: 041
     Dates: start: 20200226, end: 20200226
  6. YESCARTA [Suspect]
     Active Substance: AXICABTAGENE CILOLEUCEL
     Indication: DIFFUSE LARGE B-CELL LYMPHOMA
     Dosage: 1 DOSAGE FORM, ONCE
     Route: 041
     Dates: start: 20200221, end: 20200221
  7. KEPPRA [Suspect]
     Active Substance: LEVETIRACETAM
     Indication: NEUROTOXICITY
     Dosage: 3 G, QD
     Route: 041
     Dates: start: 20200224, end: 20200308
  8. GADOVIST [Suspect]
     Active Substance: GADOBUTROL
     Indication: SCAN
     Dosage: 1 DOSAGE FORM, ONCE
     Route: 042
     Dates: start: 20200226, end: 20200226
  9. METRONIDAZOLE. [Suspect]
     Active Substance: METRONIDAZOLE
     Indication: BONE MARROW FAILURE
     Route: 041
     Dates: start: 20200227, end: 20200301

REACTIONS (1)
  - Rash erythematous [Recovering/Resolving]

NARRATIVE: CASE EVENT DATE: 20200228
